FAERS Safety Report 11318451 (Version 1)
Quarter: 2015Q3

REPORT INFORMATION
  Report Type: Spontaneous
  Country: IN (occurrence: IN)
  Receive Date: 20150729
  Receipt Date: 20150729
  Transmission Date: 20151125
  Serious: Yes (Hospitalization)
  Sender: FDA-Public Use
  Company Number: IN-009507513-1507IND012212

PATIENT
  Age: 57 Year
  Sex: Male
  Weight: 58 kg

DRUGS (1)
  1. JANUMET [Suspect]
     Active Substance: METFORMIN HYDROCHLORIDE\SITAGLIPTIN PHOSPHATE
     Indication: DIABETES MELLITUS
     Dosage: DOSE REPORTED AS 2(UNIT NOT PROVIDED), FREQUENCY: TWO/DAY
     Route: 048

REACTIONS (2)
  - Arrhythmia [Unknown]
  - Overdose [Unknown]

NARRATIVE: CASE EVENT DATE: 20150717
